FAERS Safety Report 9641452 (Version 1)
Quarter: 2013Q4

REPORT INFORMATION
  Report Type: Spontaneous
  Country: US (occurrence: US)
  Receive Date: 20131023
  Receipt Date: 20131023
  Transmission Date: 20140711
  Serious: No
  Sender: FDA-Public Use
  Company Number: US-ABBVIE-13P-163-1093741-00

PATIENT
  Age: 50 Year
  Sex: Female
  Weight: 127.12 kg

DRUGS (5)
  1. LUPRON DEPOT [Suspect]
     Indication: UTERINE LEIOMYOMA
     Dates: start: 20130521
  2. LYSTEDA [Concomitant]
     Indication: VAGINAL HAEMORRHAGE
  3. EFFEXOR [Concomitant]
     Indication: ANXIETY
  4. LEVAQUIN [Concomitant]
     Indication: INFECTION PROPHYLAXIS
  5. PANTOPRAZOLE [Concomitant]
     Indication: GASTROOESOPHAGEAL REFLUX DISEASE

REACTIONS (2)
  - Feeling abnormal [Recovering/Resolving]
  - Heart rate increased [Recovering/Resolving]
